FAERS Safety Report 6005594-0 (Version None)
Quarter: 2008Q4

REPORT INFORMATION
  Report Type: 
  Country: None (occurrence: None)
  Receive Date: 20081217
  Receipt Date: 20081211
  Transmission Date: 20090506
  Serious: Yes (Other)
  Sender: FDA-Public Use
  Company Number: GB-PFIZER INC-2008153179

PATIENT

DRUGS (2)
  1. SULFASALAZINE [Suspect]
     Indication: COLITIS ULCERATIVE
     Dosage: UNK
     Dates: start: 19680422
  2. HYDROCORTISONE [Concomitant]
     Dosage: UNK
     Route: 054

REACTIONS (1)
  - NEUROTOXICITY [None]
